FAERS Safety Report 10087009 (Version 2)
Quarter: 2014Q2

REPORT INFORMATION
  Report Type: Report from Study
  Country: NL (occurrence: NL)
  Receive Date: 20140418
  Receipt Date: 20140507
  Transmission Date: 20141212
  Serious: Yes (Death)
  Sender: FDA-Public Use
  Company Number: PHHY2014NL047460

PATIENT
  Age: 76 Year
  Sex: Female

DRUGS (9)
  1. SANDOSTATIN LAR [Suspect]
     Indication: POLYCYSTIC LIVER DISEASE
     Dosage: 20 MG PER 2 ML, ONCE PER 4 WEEKS
     Route: 058
  2. SANDOSTATIN LAR [Suspect]
     Indication: PORTAL HYPERTENSION
     Dosage: 40 MG, UNK
     Route: 058
     Dates: start: 201106
  3. SANDOSTATIN LAR [Suspect]
     Indication: OFF LABEL USE
  4. ZALDIAR [Concomitant]
     Dosage: 3DD1
  5. ALDACTONE [Concomitant]
     Dosage: 50 MG, QD
  6. PROPANOLOL [Concomitant]
     Dosage: 2 X 10
  7. OXYCODONE [Concomitant]
     Dosage: 2 MG, UNK
  8. RIFAXIMIN [Concomitant]
     Dosage: 1100 MG, PER DAY
  9. IMPORTAL [Concomitant]
     Dosage: 1X10

REACTIONS (2)
  - Hepatic failure [Fatal]
  - Jaundice [Fatal]
